FAERS Safety Report 18971276 (Version 1)
Quarter: 2021Q1

REPORT INFORMATION
  Report Type: Spontaneous
  Country: NL (occurrence: NL)
  Receive Date: 20210305
  Receipt Date: 20210305
  Transmission Date: 20210420
  Serious: Yes (Hospitalization)
  Sender: FDA-Public Use
  Company Number: NL-SUN PHARMACEUTICAL INDUSTRIES LTD-2021RR-284353

PATIENT
  Age: 74 Year
  Sex: Male
  Weight: 75 kg

DRUGS (11)
  1. GEMCITABINE. [Suspect]
     Active Substance: GEMCITABINE
     Indication: MESOTHELIOMA
     Dosage: 1 DOSAGE FORM, DAILY
     Route: 065
     Dates: start: 20210211
  2. FOLIUMZUUR TABLET 0,5MG / BRAND NAME NOT SPECIFIEDFOLIUMZUUR TABLET... [Concomitant]
     Indication: PRODUCT USED FOR UNKNOWN INDICATION
     Dosage: TABLET, 0,5 MG (MILLIGRAM) ()
     Route: 065
  3. OXYCODON TABLET MGA  10MG / BRAND NAME NOT SPECIFIEDOXYCODON TABLET... [Concomitant]
     Indication: PRODUCT USED FOR UNKNOWN INDICATION
     Dosage: TABLET MET GEREGULEERDE AFGIFTE, 10 MG (MILLIGRAM) ()
     Route: 065
  4. PREDNISOLON TABLET  5MG / BRAND NAME NOT SPECIFIEDPREDNISOLON TABLE... [Concomitant]
     Indication: PRODUCT USED FOR UNKNOWN INDICATION
     Dosage: TABLET, 5 MG (MILLIGRAM) ()
     Route: 065
  5. METOCLOPRAMIDE TABLET 10MG / BRAND NAME NOT SPECIFIEDMETOCLOPRAMIDE... [Concomitant]
     Indication: PRODUCT USED FOR UNKNOWN INDICATION
     Dosage: TABLET, 10 MG (MILLIGRAM) ()
     Route: 065
  6. OXAZEPAM TABLET 10MG / BRAND NAME NOT SPECIFIEDOXAZEPAM TABLET 10MG [Concomitant]
     Indication: PRODUCT USED FOR UNKNOWN INDICATION
     Dosage: TABLET, 10 MG (MILLIGRAM) ()
     Route: 065
  7. ROSUVASTATINE TABLET 10MG / BRAND NAME NOT SPECIFIEDROSUVASTATINE T... [Concomitant]
     Indication: PRODUCT USED FOR UNKNOWN INDICATION
     Dosage: TABLET, 10 MG (MILLIGRAM) ()
     Route: 065
  8. OXYCODON SMELTTABLET  5MG / BRAND NAME NOT SPECIFIEDOXYCODON SMELTT... [Concomitant]
     Indication: PRODUCT USED FOR UNKNOWN INDICATION
     Dosage: SMELTTABLET, 5 MG (MILLIGRAM) ()
     Route: 065
  9. ENALAPRIL TABLET 10MG / BRAND NAME NOT SPECIFIEDENALAPRIL TABLET 10MG [Concomitant]
     Indication: PRODUCT USED FOR UNKNOWN INDICATION
     Dosage: TABLET, 10 MG (MILLIGRAM) ()
     Route: 065
  10. OMEPRAZOL CAPSULE MSR 40MG / BRAND NAME NOT SPECIFIEDOMEPRAZOL CAPS... [Concomitant]
     Indication: PRODUCT USED FOR UNKNOWN INDICATION
     Dosage: MAAGSAPRESISTENTE CAPSULE, 40 MG (MILLIGRAM) ()
     Route: 065
  11. TAMSULOSINE CAPSULE MGA 0,4MG / BRAND NAME NOT SPECIFIEDTAMSULOSINE... [Concomitant]
     Indication: PRODUCT USED FOR UNKNOWN INDICATION
     Dosage: CAPSULE MET GEREGULEERDE AFGIFTE, 0,4 MG (MILLIGRAM) ()
     Route: 065

REACTIONS (4)
  - Hypophagia [Recovering/Resolving]
  - Vomiting [Recovering/Resolving]
  - Pyrexia [Recovering/Resolving]
  - Nausea [Recovering/Resolving]

NARRATIVE: CASE EVENT DATE: 20210211
